FAERS Safety Report 5810595-9 (Version None)
Quarter: 2008Q3

REPORT INFORMATION
  Report Type: 
  Country: None (occurrence: None)
  Receive Date: 20080715
  Receipt Date: 20080707
  Transmission Date: 20090109
  Serious: Yes (Other)
  Sender: FDA-Public Use
  Company Number: JP-SANOFI-SYNTHELABO-A01200807709

PATIENT
  Sex: Male

DRUGS (4)
  1. ISOVORIN [Concomitant]
     Dosage: UNK
     Route: 041
     Dates: start: 20080121, end: 20080122
  2. FLUOROURACIL [Suspect]
     Route: 042
     Dates: start: 20080121, end: 20080122
  3. ELPLAT [Suspect]
     Indication: COLON CANCER METASTATIC
     Route: 041
     Dates: start: 20080121, end: 20080121
  4. AVASTIN [Suspect]
     Route: 041
     Dates: start: 20080121, end: 20080121

REACTIONS (4)
  - DIARRHOEA [None]
  - PALMAR-PLANTAR ERYTHRODYSAESTHESIA SYNDROME [None]
  - STOMATITIS [None]
  - WHITE BLOOD CELL COUNT DECREASED [None]
